FAERS Safety Report 24743085 (Version 8)
Quarter: 2025Q3

REPORT INFORMATION
  Report Type: Spontaneous
  Country: US (occurrence: US)
  Receive Date: 20241217
  Receipt Date: 20250923
  Transmission Date: 20251020
  Serious: Yes (Hospitalization, Other)
  Sender: BIOVITRUM
  Company Number: US-BIOVITRUM-2024-US-016082

PATIENT
  Age: 74 Year
  Sex: Female

DRUGS (3)
  1. VONJO [Suspect]
     Active Substance: PACRITINIB
     Indication: Myelofibrosis
     Route: 048
     Dates: start: 20241122
  2. VONJO [Suspect]
     Active Substance: PACRITINIB
     Route: 048
     Dates: start: 20241122
  3. VONJO [Suspect]
     Active Substance: PACRITINIB
     Route: 048
     Dates: start: 20240922

REACTIONS (12)
  - Renal impairment [Unknown]
  - Cough [Unknown]
  - Vision blurred [Unknown]
  - Pinguecula [Unknown]
  - Nausea [Recovered/Resolved]
  - Vomiting [Unknown]
  - Pruritus [Unknown]
  - Peripheral coldness [Unknown]
  - Product use issue [Unknown]
  - Intentional dose omission [Unknown]
  - Laboratory test abnormal [Recovered/Resolved]
  - Sleep disorder [Unknown]
